FAERS Safety Report 6288083-8 (Version None)
Quarter: 2009Q3

REPORT INFORMATION
  Report Type: 
  Country: None (occurrence: None)
  Receive Date: 20090729
  Receipt Date: 20090724
  Transmission Date: 20100115
  Serious: Yes (Death)
  Sender: FDA-Public Use
  Company Number: PHHY2009JP30847

PATIENT
  Sex: Female

DRUGS (4)
  1. DIOVAN [Suspect]
     Dosage: 80 MG, QD
     Route: 048
     Dates: start: 20071018
  2. SUNRYTHM [Concomitant]
     Dosage: UNK
     Route: 048
     Dates: start: 20070628
  3. MIGLITOL [Concomitant]
     Dosage: UNK
     Route: 048
     Dates: start: 20070628
  4. HUMALOG MIX [Concomitant]
     Dosage: 30 DF, UNK
     Route: 058
     Dates: start: 20070628

REACTIONS (1)
  - DEATH [None]
